FAERS Safety Report 19710521 (Version 1)
Quarter: 2021Q3

REPORT INFORMATION
  Report Type: Spontaneous
  Country: US (occurrence: US)
  Receive Date: 20210816
  Receipt Date: 20210816
  Transmission Date: 20211014
  Serious: Yes (Hospitalization)
  Sender: FDA-Public Use
  Company Number: US-JNJFOC-20210805349

PATIENT
  Age: 29 Year
  Sex: Female
  Weight: 69 kg

DRUGS (1)
  1. PARACETAMOL [Suspect]
     Active Substance: ACETAMINOPHEN
     Indication: SUICIDE ATTEMPT
     Dosage: 70000 MG SINGLE DOSE AT 13:00
     Route: 048
     Dates: start: 19980622, end: 19980622

REACTIONS (9)
  - Lymphocyte percentage decreased [Recovered/Resolved]
  - Intentional overdose [Recovered/Resolved]
  - Carbon dioxide decreased [Recovered/Resolved]
  - White blood cell count increased [Recovered/Resolved]
  - Blood pH increased [Recovered/Resolved]
  - Acute hepatic failure [Recovered/Resolved]
  - Neutrophil percentage increased [Recovered/Resolved]
  - Suicide attempt [Recovered/Resolved]
  - Blood phosphorus decreased [Recovered/Resolved]

NARRATIVE: CASE EVENT DATE: 19980623
